FAERS Safety Report 9532239 (Version 1)
Quarter: 2013Q2

REPORT INFORMATION
  Report Type: Spontaneous
  Country: US (occurrence: None)
  Receive Date: 20130503
  Receipt Date: 20130503
  Transmission Date: 20140414
  Serious: Yes (Other)
  Sender: FDA-Public Use
  Company Number: 1000042998

PATIENT
  Age: 51 Year
  Sex: Female
  Weight: 52.61 kg

DRUGS (2)
  1. DALIRESP (ROFLUMILAST) (500 MICROGRAM, TABLETS) [Suspect]
     Indication: CHRONIC OBSTRUCTIVE PULMONARY DISEASE
     Route: 048
     Dates: start: 201210, end: 201212
  2. DALIRESP (ROFLUMILAST) (500 MICROGRAM, TABLETS) [Suspect]
     Indication: ASTHMA
     Route: 048
     Dates: start: 201210, end: 201212

REACTIONS (4)
  - Weight decreased [None]
  - Anxiety [None]
  - Decreased appetite [None]
  - Insomnia [None]
